FAERS Safety Report 19381863 (Version 1)
Quarter: 2021Q2

REPORT INFORMATION
  Report Type: Spontaneous
  Country: US (occurrence: US)
  Receive Date: 20210607
  Receipt Date: 20210607
  Transmission Date: 20210717
  Serious: Yes (Hospitalization, Other)
  Sender: FDA-Public Use
  Company Number: US-VISTAPHARM, INC.-VER202105-001381

PATIENT
  Age: 36 Year
  Sex: Female

DRUGS (3)
  1. DIPHENHYDRAMINE. [Concomitant]
     Active Substance: DIPHENHYDRAMINE
     Indication: SEDATION
     Dosage: UNKNOWN
  2. DIGOXIN. [Suspect]
     Active Substance: DIGOXIN
     Indication: PRODUCT USED FOR UNKNOWN INDICATION
     Dosage: 450 MCG
     Route: 037
  3. DEXMEDETOMIDINE. [Concomitant]
     Active Substance: DEXMEDETOMIDINE
     Indication: SEDATION
     Dosage: UNKNOWN

REACTIONS (10)
  - Electrocardiogram QT prolonged [Unknown]
  - Agitation [Unknown]
  - Speech disorder [Recovered/Resolved]
  - Visual field defect [Unknown]
  - Respiratory failure [Unknown]
  - Seizure [Unknown]
  - Muscular weakness [Unknown]
  - Hypokalaemia [Unknown]
  - Confusional state [Unknown]
  - Dysphagia [Unknown]
